FAERS Safety Report 7624786-8 (Version None)
Quarter: 2011Q3

REPORT INFORMATION
  Report Type: 
  Country: None (occurrence: None)
  Receive Date: 20110720
  Receipt Date: 20110713
  Transmission Date: 20111222
  Serious: Yes (Hospitalization)
  Sender: FDA-Public Use
  Company Number: ZA-BAYER-2011-061247

PATIENT
  Age: 65 Year
  Sex: Male

DRUGS (1)
  1. MOXIFLOXACIN [Suspect]
     Dosage: DAILY DOSE 400 MG
     Route: 048

REACTIONS (4)
  - HEART RATE INCREASED [None]
  - BLOOD PRESSURE DECREASED [None]
  - MYOCARDIAL INFARCTION [None]
  - LOSS OF CONSCIOUSNESS [None]
